FAERS Safety Report 20909464 (Version 1)
Quarter: 2022Q2

REPORT INFORMATION
  Report Type: Other
  Country: EG (occurrence: EG)
  Receive Date: 20220603
  Receipt Date: 20220603
  Transmission Date: 20220720
  Serious: Yes (Other)
  Sender: FDA-Public Use
  Company Number: EG-002147023-NVSC2022EG121478

PATIENT
  Age: 33 Year
  Sex: Female

DRUGS (5)
  1. XOLAIR [Suspect]
     Active Substance: OMALIZUMAB
     Indication: Urticaria
     Dosage: 150 MG, QMO (FOR 6 MONTHS)
     Route: 065
  2. DEXAMETHASONE [Concomitant]
     Active Substance: DEXAMETHASONE
     Indication: Urticaria
     Dosage: UNK UNK, QD (EVERY OTHER DAY)
     Route: 065
     Dates: start: 2019, end: 20220428
  3. HYDROCORTISONE [Concomitant]
     Active Substance: HYDROCORTISONE
     Indication: Urticaria
     Dosage: UNK UNK, QD (EVERY OTHER DAY)
     Route: 065
     Dates: start: 2019, end: 20220428
  4. PREDNISOLONE [Concomitant]
     Active Substance: PREDNISOLONE
     Indication: Urticaria
     Dosage: 1 DOSAGE FORM, QD
     Route: 048
     Dates: start: 20220428
  5. ALLERGENS [Concomitant]
     Indication: Urticaria
     Dosage: 1 DOSAGE FORM, QD
     Route: 048
     Dates: start: 20220428

REACTIONS (9)
  - Pain in extremity [Not Recovered/Not Resolved]
  - Blood electrolytes increased [Not Recovered/Not Resolved]
  - Oropharyngeal pain [Not Recovered/Not Resolved]
  - Dysphagia [Not Recovered/Not Resolved]
  - Fatigue [Not Recovered/Not Resolved]
  - Laziness [Not Recovered/Not Resolved]
  - Hypersomnia [Not Recovered/Not Resolved]
  - Pain [Unknown]
  - Product prescribing issue [Unknown]

NARRATIVE: CASE EVENT DATE: 20220301
